FAERS Safety Report 4450727-0 (Version None)
Quarter: 2004Q3

REPORT INFORMATION
  Report Type: 
  Country: None (occurrence: None)
  Receive Date: 20040914
  Receipt Date: 20040914
  Transmission Date: 20050211
  Serious: Yes (Hospitalization)
  Sender: FDA-Public Use
  Company Number: None

PATIENT
  Age: 80 Year
  Sex: Male
  Weight: 69.8539 kg

DRUGS (2)
  1. ETANERCEPT [Suspect]
     Indication: CHRONIC LYMPHOCYTIC LEUKAEMIA
     Dosage: 25 MG SQ BIW
  2. RITUXIMAB [Suspect]
     Dosage: 375 MG/M2 TIW

REACTIONS (1)
  - DIVERTICULITIS [None]
